FAERS Safety Report 11147223 (Version 2)
Quarter: 2015Q3

REPORT INFORMATION
  Report Type: Spontaneous
  Country: US (occurrence: US)
  Receive Date: 20150528
  Receipt Date: 20150827
  Transmission Date: 20151125
  Serious: Yes (Hospitalization, Other)
  Sender: FDA-Public Use
  Company Number: US-GLAXOSMITHKLINE-US2015GSK072457

PATIENT
  Age: 41 Year
  Sex: Female
  Weight: 88 kg

DRUGS (4)
  1. MELPHALAN SOLUTION FOR INJECTION/INFUSION [Suspect]
     Active Substance: MELPHALAN
     Indication: PLASMA CELL MYELOMA
     Dosage: UNK, SINGLE
     Route: 042
     Dates: start: 20101013, end: 20101013
  2. CYTOXAN [Suspect]
     Active Substance: CYCLOPHOSPHAMIDE
     Indication: PLASMA CELL MYELOMA
     Dosage: 575 DF, CYC
     Route: 048
     Dates: start: 20100504, end: 20101003
  3. MELPHALAN SOLUTION FOR INJECTION/INFUSION [Suspect]
     Active Substance: MELPHALAN
     Indication: STEM CELL TRANSPLANT
  4. BORTEZOMIB SOLUTION FOR INJECTION/INFUSION [Suspect]
     Active Substance: BORTEZOMIB
     Indication: PLASMA CELL MYELOMA
     Dosage: 2.5 MG, WE
     Route: 042
     Dates: start: 20100504, end: 20100910

REACTIONS (6)
  - Anaemia [Unknown]
  - Febrile neutropenia [Recovered/Resolved]
  - Diarrhoea [Unknown]
  - Pyrexia [Unknown]
  - Neutropenia [Unknown]
  - Thrombocytopenia [Unknown]

NARRATIVE: CASE EVENT DATE: 20101025
